FAERS Safety Report 6793967-8 (Version None)
Quarter: 2010Q2

REPORT INFORMATION
  Report Type: 
  Country: None (occurrence: None)
  Receive Date: 20100624
  Receipt Date: 20070514
  Transmission Date: 20101027
  Serious: No
  Sender: FDA-Public Use
  Company Number: US-PFIZER INC-ENC200700069

PATIENT
  Sex: Female
  Weight: 53.3 kg

DRUGS (18)
  1. ARGATROBAN [Suspect]
     Indication: HEPARIN-INDUCED THROMBOCYTOPENIA
     Dosage: 2 MCG/KG/MIN,FREQUENCY:  UNK
     Route: 042
     Dates: start: 20070507, end: 20070507
  2. WARFARIN SODIUM [Concomitant]
     Dates: start: 20070510, end: 20070513
  3. MIRTAZAPINE [Concomitant]
  4. SEVELAMER [Concomitant]
  5. PIOGLITAZONE [Concomitant]
  6. DARBEPOETIN ALFA [Concomitant]
  7. CARVEDILOL [Concomitant]
  8. TRAZODONE HYDROCHLORIDE [Concomitant]
  9. LISINOPRIL [Concomitant]
  10. SALBUTAMOL [Concomitant]
  11. FOLATE SODIUM [Concomitant]
  12. DOCUSATE [Concomitant]
  13. SENNA [Concomitant]
  14. TIOTROPIUM [Concomitant]
  15. VITAMIN TAB [Concomitant]
  16. ATORVASTATIN [Concomitant]
  17. OXYCODONE HYDROCHLORIDE, OXYCODONE TEREPHTHALATE, PARACETAMOL [Concomitant]
  18. HEPARIN [Concomitant]

REACTIONS (1)
  - COAGULATION TIME PROLONGED [None]
